FAERS Safety Report 21141886 (Version 1)
Quarter: 2022Q3

REPORT INFORMATION
  Report Type: Spontaneous
  Country: US (occurrence: None)
  Receive Date: 20220727
  Receipt Date: 20220727
  Transmission Date: 20221026
  Serious: Yes (Disabling)
  Sender: FDA-Public Use
  Company Number: None

PATIENT
  Age: 70 Year
  Sex: Female
  Weight: 94.5 kg

DRUGS (7)
  1. LEVOFLOXACIN [Suspect]
     Active Substance: LEVOFLOXACIN
     Indication: Bacterial infection
     Dosage: FREQUENCY : DAILY;?
     Route: 048
     Dates: start: 20220627, end: 20220701
  2. PREGABALIN [Concomitant]
     Active Substance: PREGABALIN
  3. TRAMADOL [Concomitant]
     Active Substance: TRAMADOL
  4. CETIRIZINE [Concomitant]
     Active Substance: CETIRIZINE HYDROCHLORIDE
  5. MONTELUKAST [Concomitant]
     Active Substance: MONTELUKAST SODIUM
  6. CYCLOBENZAPRINE [Concomitant]
     Active Substance: CYCLOBENZAPRINE
  7. TYLENOL [Concomitant]
     Active Substance: ACETAMINOPHEN

REACTIONS (4)
  - Arthralgia [None]
  - Gait disturbance [None]
  - Peripheral swelling [None]
  - Neuropathy peripheral [None]

NARRATIVE: CASE EVENT DATE: 20220629
